FAERS Safety Report 5536906-X (Version None)
Quarter: 2007Q4

REPORT INFORMATION
  Report Type: 
  Country: None (occurrence: None)
  Receive Date: 20071207
  Receipt Date: 20071203
  Transmission Date: 20080405
  Serious: Yes (Other)
  Sender: FDA-Public Use
  Company Number: PHBS2007ES20287

PATIENT
  Age: 75 Year
  Sex: Female

DRUGS (1)
  1. KALPRESS [Suspect]
     Dosage: 160 MG, UNK
     Route: 048
     Dates: start: 20070216, end: 20070315

REACTIONS (3)
  - AUTOIMMUNE THROMBOCYTOPENIA [None]
  - EPISTAXIS [None]
  - HAEMOPTYSIS [None]
